FAERS Safety Report 4986230-9 (Version None)
Quarter: 2006Q2

REPORT INFORMATION
  Report Type: 
  Country: None (occurrence: None)
  Receive Date: 20060428
  Receipt Date: 20051006
  Transmission Date: 20061013
  Serious: Yes (Death, Hospitalization, Other)
  Sender: FDA-Public Use
  Company Number: US-MERCK-0510USA06100

PATIENT
  Age: 86 Year
  Sex: Male
  Weight: 80 kg

DRUGS (2)
  1. VIOXX [Suspect]
     Indication: ARTHRALGIA
     Route: 048
     Dates: start: 19990101, end: 20030301
  2. PREDNISONE [Suspect]
     Route: 065

REACTIONS (26)
  - ABDOMINAL HERNIA [None]
  - ASTHENIA [None]
  - ATRIOVENTRICULAR BLOCK COMPLETE [None]
  - BLOOD GLUCOSE INCREASED [None]
  - CARDIAC ARREST [None]
  - CARDIAC FAILURE CONGESTIVE [None]
  - CEREBRAL ISCHAEMIA [None]
  - CEREBROVASCULAR ACCIDENT [None]
  - CORONARY ARTERY DISEASE [None]
  - DIVERTICULUM [None]
  - DYSPHAGIA [None]
  - HEART RATE IRREGULAR [None]
  - HYPERTENSION [None]
  - MYOPATHY STEROID [None]
  - PNEUMONIA ASPIRATION [None]
  - POLYMYALGIA RHEUMATICA [None]
  - POLYP [None]
  - POSTOPERATIVE WOUND INFECTION [None]
  - RESPIRATORY ARREST [None]
  - RESPIRATORY FAILURE [None]
  - SEPSIS [None]
  - SICK SINUS SYNDROME [None]
  - SQUAMOUS CELL CARCINOMA [None]
  - SWEAT GLAND TUMOUR [None]
  - URETHRAL INJURY [None]
  - URINARY BLADDER HAEMORRHAGE [None]
